FAERS Safety Report 8101449-6 (Version None)
Quarter: 2012Q1

REPORT INFORMATION
  Report Type: 
  Country: None (occurrence: None)
  Receive Date: 20120129
  Receipt Date: 20111006
  Transmission Date: 20120608
  Serious: No
  Sender: FDA-Public Use
  Company Number: US-ABBOTT-11P-163-0862857-00

PATIENT
  Sex: Female

DRUGS (3)
  1. VIVAL [Concomitant]
     Indication: HORMONE REPLACEMENT THERAPY
  2. MULTIPLE VITAMIN [Concomitant]
     Indication: VITAMIN SUPPLEMENTATION
  3. HUMIRA [Suspect]
     Indication: PSORIASIS
     Dates: start: 20110818

REACTIONS (3)
  - RASH PAPULAR [None]
  - STAPHYLOCOCCAL INFECTION [None]
  - RASH PRURITIC [None]
